FAERS Safety Report 21720852 (Version 1)
Quarter: 2022Q4

REPORT INFORMATION
  Report Type: Spontaneous
  Country: US (occurrence: US)
  Receive Date: 20221213
  Receipt Date: 20221213
  Transmission Date: 20230112
  Serious: Yes (Other)
  Sender: FDA-Public Use
  Company Number: US-STRIDES ARCOLAB LIMITED-2022SP011775

PATIENT
  Age: 52 Year
  Sex: Male

DRUGS (10)
  1. PREDNISOLONE [Suspect]
     Active Substance: PREDNISOLONE
     Indication: Hormone-refractory prostate cancer
     Dosage: 5 MILLIGRAM, BID
     Route: 048
  2. PREDNISOLONE [Suspect]
     Active Substance: PREDNISOLONE
     Dosage: 5 MILLIGRAM, QD
     Route: 048
  3. CARBOPLATIN [Suspect]
     Active Substance: CARBOPLATIN
     Indication: Hormone-refractory prostate cancer
     Dosage: UNK, AN AUC OF 4; RECEIVED 2 CYCLES (INFUSION)
     Route: 042
  4. BICALUTAMIDE [Suspect]
     Active Substance: BICALUTAMIDE
     Indication: Hormone-refractory prostate cancer
     Dosage: 50 MILLIGRAM PER DAY
     Route: 048
  5. LEUPROLIDE ACETATE [Suspect]
     Active Substance: LEUPROLIDE ACETATE
     Indication: Hormone-refractory prostate cancer
     Dosage: 22.5 MILLIGRAM EVERY 3 MONTH, DEPOT INJECTION
     Route: 065
  6. DOCETAXEL [Suspect]
     Active Substance: DOCETAXEL
     Indication: Hormone-refractory prostate cancer
     Dosage: 75 MILLIGRAM/SQ. METER, EVERY 3 WEEKS FOR 4 CYCLES
     Route: 042
  7. ABIRATERONE [Suspect]
     Active Substance: ABIRATERONE
     Indication: Hormone-refractory prostate cancer
     Dosage: 1000 MILLIGRAM, QD
     Route: 065
  8. RUCAPARIB [Suspect]
     Active Substance: RUCAPARIB
     Indication: Hormone-refractory prostate cancer
     Dosage: 600 MILLIGRAM, BID
     Route: 065
  9. RUCAPARIB [Suspect]
     Active Substance: RUCAPARIB
     Dosage: 500 MILLIGRAM, BID
     Route: 065
  10. CABAZITAXEL [Suspect]
     Active Substance: CABAZITAXEL
     Indication: Hormone-refractory prostate cancer
     Dosage: 20 MILLIGRAM/SQ. METER, CYCLICAL, RECEIVED 2 CYCLES
     Route: 042

REACTIONS (2)
  - Drug ineffective [Unknown]
  - Off label use [Unknown]
